FAERS Safety Report 19791409 (Version 1)
Quarter: 2021Q3

REPORT INFORMATION
  Report Type: Spontaneous
  Country: US (occurrence: US)
  Receive Date: 20210906
  Receipt Date: 20210906
  Transmission Date: 20211014
  Serious: Yes (Other)
  Sender: FDA-Public Use
  Company Number: US-NOVOPROD-842778

PATIENT
  Age: 42 Year
  Sex: Female

DRUGS (1)
  1. OZEMPIC [Suspect]
     Active Substance: SEMAGLUTIDE
     Indication: INSULIN RESISTANCE
     Dosage: 0.25 MG, QW
     Route: 058
     Dates: start: 20210815, end: 20210824

REACTIONS (6)
  - Vomiting [Unknown]
  - Pancreatic disorder [Unknown]
  - Dehydration [Not Recovered/Not Resolved]
  - Migraine [Not Recovered/Not Resolved]
  - Renal injury [Unknown]
  - Nausea [Unknown]

NARRATIVE: CASE EVENT DATE: 202108
